FAERS Safety Report 15178759 (Version 1)
Quarter: 2018Q3

REPORT INFORMATION
  Report Type: Spontaneous
  Country: DE (occurrence: DE)
  Receive Date: 20180722
  Receipt Date: 20180722
  Transmission Date: 20181010
  Serious: Yes (Other)
  Sender: FDA-Public Use
  Company Number: PHHY2018DE051140

PATIENT
  Age: 17 Year
  Sex: Male

DRUGS (3)
  1. TESTOGEL [Suspect]
     Active Substance: TESTOSTERONE
     Indication: CONGENITAL ANDROGEN DEFICIENCY
     Dosage: 25 MG, QD (1 SACHET 1 UG/LITRE)
     Route: 062
     Dates: start: 2016, end: 20180417
  2. TESTOGEL [Suspect]
     Active Substance: TESTOSTERONE
     Dosage: 1 ?G/L, QD1 PUFF DAILY (IN THE EVENING)
     Route: 062
     Dates: start: 20180418, end: 20180424
  3. AMOXICILLIN. [Suspect]
     Active Substance: AMOXICILLIN
     Indication: TONSILLITIS
     Dosage: 3 ?G/L, QD (3 TABLETS DAILY FOR 7 DAYS)
     Route: 048
     Dates: start: 20180417, end: 20180423

REACTIONS (6)
  - Drug administered to patient of inappropriate age [Unknown]
  - Rash maculo-papular [Recovered/Resolved]
  - Dyspnoea [Recovered/Resolved]
  - Pruritus generalised [Recovered/Resolved]
  - Rash erythematous [Recovered/Resolved]
  - Pain of skin [Recovered/Resolved]

NARRATIVE: CASE EVENT DATE: 2016
